FAERS Safety Report 4263837-8 (Version None)
Quarter: 2004Q1

REPORT INFORMATION
  Report Type: 
  Country: None (occurrence: None)
  Receive Date: 20040102
  Receipt Date: 20031217
  Transmission Date: 20041129
  Serious: Yes (Hospitalization)
  Sender: FDA-Public Use
  Company Number: FR_031203322

PATIENT
  Age: 56 Year
  Sex: Female

DRUGS (6)
  1. ZYPREXA [Suspect]
     Dosage: 15 MG/DAY
     Dates: start: 20031001
  2. IMOVANE (ZOPICLONE) [Concomitant]
  3. AKINETON [Concomitant]
  4. SULFARLEM (ANETHOLE TRITHIONE) [Concomitant]
  5. CLONAZEPAM [Concomitant]
  6. FORLAX (MACROGOL) [Concomitant]

REACTIONS (2)
  - CYTOLYTIC HEPATITIS [None]
  - HEPATITIS CHOLESTATIC [None]
